FAERS Safety Report 6982388-0 (Version None)
Quarter: 2010Q3

REPORT INFORMATION
  Report Type: 
  Country: None (occurrence: None)
  Receive Date: 20100914
  Receipt Date: 20100112
  Transmission Date: 20110219
  Serious: No
  Sender: FDA-Public Use
  Company Number: US-PFIZER INC-2010004801

PATIENT
  Sex: Female

DRUGS (1)
  1. LYRICA [Suspect]
     Indication: NAUSEA
     Dosage: UNK

REACTIONS (3)
  - DRY EYE [None]
  - OCULAR HYPERAEMIA [None]
  - VISION BLURRED [None]
